FAERS Safety Report 9774343 (Version 1)
Quarter: 2013Q4

REPORT INFORMATION
  Report Type: Spontaneous
  Country: CA (occurrence: CA)
  Receive Date: 20131220
  Receipt Date: 20131220
  Transmission Date: 20140711
  Serious: Yes (Disabling)
  Sender: FDA-Public Use
  Company Number: CA-BAYER-2013-153183

PATIENT
  Age: 23 Year
  Sex: Female

DRUGS (2)
  1. YASMIN 21 [Suspect]
     Dosage: 1 YEAR
     Route: 065
  2. YAZ [Suspect]
     Route: 065

REACTIONS (3)
  - Retinal vein thrombosis [Not Recovered/Not Resolved]
  - Retinal vein occlusion [Not Recovered/Not Resolved]
  - Blindness [Not Recovered/Not Resolved]
